FAERS Safety Report 9219353 (Version 2)
Quarter: 2014Q3

REPORT INFORMATION
  Report Type: Spontaneous
  Country: FR (occurrence: FR)
  Receive Date: 20130409
  Receipt Date: 20140903
  Transmission Date: 20150326
  Serious: Yes (Death, Other)
  Sender: FDA-Public Use
  Company Number: FR-B.I. PHARMACEUTICALS,INC./RIDGEFIELD-2013-BI-09703YA

PATIENT
  Sex: Female

DRUGS (1)
  1. JOSIR [Suspect]
     Active Substance: TAMSULOSIN
     Indication: URINARY RETENTION
     Route: 048
     Dates: start: 2007

REACTIONS (2)
  - Off label use [Unknown]
  - Hodgkin^s disease [Fatal]

NARRATIVE: CASE EVENT DATE: 2007
